FAERS Safety Report 24794972 (Version 2)
Quarter: 2025Q1

REPORT INFORMATION
  Report Type: Spontaneous
  Country: JP (occurrence: JP)
  Receive Date: 20241231
  Receipt Date: 20250108
  Transmission Date: 20250408
  Serious: Yes (Other)
  Sender: ALEXION PHARMACEUTICALS
  Company Number: JP-ASTRAZENECA-240145924_032320_P_1

PATIENT

DRUGS (4)
  1. SAPHNELO [Suspect]
     Active Substance: ANIFROLUMAB-FNIA
     Indication: Systemic lupus erythematosus
  2. SAPHNELO [Suspect]
     Active Substance: ANIFROLUMAB-FNIA
     Route: 041
  3. SAPHNELO [Suspect]
     Active Substance: ANIFROLUMAB-FNIA
  4. SAPHNELO [Suspect]
     Active Substance: ANIFROLUMAB-FNIA
     Route: 041

REACTIONS (1)
  - Enteritis infectious [Recovered/Resolved]
